FAERS Safety Report 14495463 (Version 1)
Quarter: 2018Q1

REPORT INFORMATION
  Report Type: Spontaneous
  Country: US (occurrence: US)
  Receive Date: 20180206
  Receipt Date: 20180206
  Transmission Date: 20180509
  Serious: No
  Sender: FDA-Public Use
  Company Number: US-SMITH AND NEPHEW, INC-2017SMT00284

PATIENT
  Sex: Female

DRUGS (1)
  1. REGRANEX [Suspect]
     Active Substance: BECAPLERMIN
     Indication: WOUND
     Dosage: UNK
     Route: 061
     Dates: end: 201704

REACTIONS (6)
  - Application site pain [Unknown]
  - Skin irritation [Unknown]
  - Drug ineffective for unapproved indication [Not Recovered/Not Resolved]
  - Application site vesicles [Unknown]
  - Off label use [Recovered/Resolved]
  - Wound complication [Unknown]
